FAERS Safety Report 18627113 (Version 2)
Quarter: 2020Q4

REPORT INFORMATION
  Report Type: Spontaneous
  Country: AU (occurrence: AU)
  Receive Date: 20201217
  Receipt Date: 20201228
  Transmission Date: 20210114
  Serious: Yes (Other)
  Sender: FDA-Public Use
  Company Number: AU-BAUSCH-BL-2020-035960

PATIENT
  Age: 8 Year
  Sex: Male

DRUGS (8)
  1. VINCRISTINE [Concomitant]
     Active Substance: VINCRISTINE
     Indication: HEPATIC CANCER
     Dosage: DAY1 AND 8) (WEEK 1, 4, 12)
  2. IRINOTECAN [Concomitant]
     Active Substance: IRINOTECAN
     Indication: HEPATIC CANCER
     Dosage: DAY 1-5
  3. CISPLATIN. [Concomitant]
     Active Substance: CISPLATIN
     Indication: HEPATIC CANCER
     Dosage: DAY1 (WEEK 7, 10, 15, POST OPERATION, 21 DAYS POST TRANSPLANT)
  4. 5-FLUOROURACIL [Concomitant]
     Active Substance: FLUOROURACIL
     Indication: HEPATIC CANCER
     Dosage: DAY 2
  5. DOXORUBICIN [Concomitant]
     Active Substance: DOXORUBICIN
     Indication: HEPATIC CANCER
     Dosage: 15MIN, DAY1-2.
  6. TACROLIMUS. [Suspect]
     Active Substance: TACROLIMUS
     Indication: IMMUNOSUPPRESSANT DRUG THERAPY
     Route: 065
  7. MYCOPHENOLATE MOFETIL. [Suspect]
     Active Substance: MYCOPHENOLATE MOFETIL
     Indication: IMMUNOSUPPRESSANT DRUG THERAPY
     Route: 065
  8. PREDNISOLONE. [Suspect]
     Active Substance: PREDNISOLONE
     Indication: IMMUNOSUPPRESSANT DRUG THERAPY
     Route: 065

REACTIONS (2)
  - Biliary anastomosis complication [Recovered/Resolved]
  - Abdominal abscess [Recovered/Resolved]
